FAERS Safety Report 20838265 (Version 1)
Quarter: 2022Q2

REPORT INFORMATION
  Report Type: Spontaneous
  Country: US (occurrence: US)
  Receive Date: 20220517
  Receipt Date: 20220517
  Transmission Date: 20220721
  Serious: Yes (Other)
  Sender: FDA-Public Use
  Company Number: US-JNJFOC-20220517580

PATIENT
  Sex: Female

DRUGS (1)
  1. SPRAVATO [Suspect]
     Active Substance: ESKETAMINE
     Indication: Depression
     Dates: start: 202204

REACTIONS (5)
  - COVID-19 [Unknown]
  - Strabismus [Unknown]
  - Nausea [Unknown]
  - Photophobia [Unknown]
  - Vomiting [Unknown]

NARRATIVE: CASE EVENT DATE: 20220501
